FAERS Safety Report 10754813 (Version 1)
Quarter: 2015Q1

REPORT INFORMATION
  Report Type: Spontaneous
  Country: US (occurrence: None)
  Receive Date: 20150130
  Receipt Date: 20150130
  Transmission Date: 20150721
  Serious: Yes (Life-Threatening, Hospitalization)
  Sender: FDA-Public Use
  Company Number: None

PATIENT
  Age: 28 Year
  Sex: Female

DRUGS (1)
  1. LOPERAMIDE [Suspect]
     Active Substance: LOPERAMIDE

REACTIONS (4)
  - Ventricular arrhythmia [None]
  - Cardio-respiratory arrest [None]
  - Intentional overdose [None]
  - Drug abuse [None]

NARRATIVE: CASE EVENT DATE: 20150117
